FAERS Safety Report 9115712 (Version 1)
Quarter: 2013Q1

REPORT INFORMATION
  Report Type: Spontaneous
  Country: US (occurrence: None)
  Receive Date: 20130221
  Receipt Date: 20130221
  Transmission Date: 20140127
  Serious: Yes (Other)
  Sender: FDA-Public Use
  Company Number: None

PATIENT
  Age: 71 Year
  Sex: Female
  Weight: 81.65 kg

DRUGS (1)
  1. TOBRAMYCIN + DEXAMETHASONE [Suspect]
     Indication: EYE INFECTION
     Dosage: 1 DROP RIGHT EYE 2.5 ML  4 TIMES A DAY
     Dates: start: 20120704, end: 20120711

REACTIONS (4)
  - Eye swelling [None]
  - Cardiac disorder [None]
  - Drug prescribing error [None]
  - Contraindication to medical treatment [None]
